FAERS Safety Report 9865236 (Version 1)
Quarter: 2014Q1

REPORT INFORMATION
  Report Type: Spontaneous
  Country: DE (occurrence: DE)
  Receive Date: 20140203
  Receipt Date: 20140203
  Transmission Date: 20141002
  Serious: Yes (Life-Threatening, Hospitalization)
  Sender: FDA-Public Use
  Company Number: GXKR2014DE000687

PATIENT
  Sex: 0

DRUGS (2)
  1. ACETYLSALICYLIC ACID [Suspect]
     Indication: CORONARY ARTERY DISEASE
     Dosage: 100 MG, UNK
     Route: 048
     Dates: start: 2008, end: 20140117
  2. XARELTO [Suspect]
     Indication: ATRIAL FIBRILLATION
     Dosage: 20 UKN, UNK
     Route: 048
     Dates: start: 20130917, end: 20140117

REACTIONS (1)
  - Lower gastrointestinal haemorrhage [Recovering/Resolving]
